FAERS Safety Report 5295340-0 (Version None)
Quarter: 2007Q2

REPORT INFORMATION
  Report Type: 
  Country: None (occurrence: None)
  Receive Date: 20070412
  Receipt Date: 20070331
  Transmission Date: 20071010
  Serious: Yes (Hospitalization, Other)
  Sender: FDA-Public Use
  Company Number: US-PFIZER INC-2007007310

PATIENT
  Sex: Female
  Weight: 47.6 kg

DRUGS (3)
  1. CLINDAMYCIN HYDROCHLORIDE [Suspect]
     Indication: TOOTH ABSCESS
     Route: 048
  2. IBUPROFEN [Suspect]
     Indication: TOOTHACHE
  3. LORCET-HD [Suspect]
     Indication: TOOTHACHE
     Route: 048

REACTIONS (7)
  - ERYTHEMA [None]
  - PYREXIA [None]
  - RASH [None]
  - SKIN EXFOLIATION [None]
  - SWELLING [None]
  - THERMAL BURN [None]
  - WHITE BLOOD CELL COUNT INCREASED [None]
